FAERS Safety Report 11888968 (Version 1)
Quarter: 2016Q1

REPORT INFORMATION
  Report Type: Spontaneous
  Country: US (occurrence: None)
  Receive Date: 20160104
  Receipt Date: 20160104
  Transmission Date: 20160526
  Serious: No
  Sender: FDA-Public Use
  Company Number: None

PATIENT
  Age: 8 Year
  Sex: Female
  Weight: 26.31 kg

DRUGS (2)
  1. LASTACAFT [Suspect]
     Active Substance: ALCAFTADINE
     Indication: EYE IRRITATION
     Dosage: ONE DROP  EACH EYE, INTO THE EYE
     Route: 047
     Dates: start: 20151218, end: 20160101
  2. THERATEARS [Concomitant]
     Active Substance: CARBOXYMETHYLCELLULOSE SODIUM

REACTIONS (2)
  - Eye discharge [None]
  - Ocular hyperaemia [None]

NARRATIVE: CASE EVENT DATE: 20160101
